FAERS Safety Report 7351299-3 (Version None)
Quarter: 2011Q1

REPORT INFORMATION
  Report Type: 
  Country: None (occurrence: None)
  Receive Date: 20110314
  Receipt Date: 20110310
  Transmission Date: 20110831
  Serious: Yes (Hospitalization)
  Sender: FDA-Public Use
  Company Number: US-ALLERGAN-1103431US

PATIENT
  Age: 82 Year
  Sex: Female

DRUGS (2)
  1. STATIN [Concomitant]
     Indication: BLOOD CHOLESTEROL INCREASED
  2. BOTOXA? [Suspect]
     Indication: MUSCLE SPASTICITY
     Dosage: 200 UNITS, SINGLE
     Dates: start: 20110223, end: 20110223

REACTIONS (4)
  - RHABDOMYOLYSIS [None]
  - MUSCULAR WEAKNESS [None]
  - DYSARTHRIA [None]
  - HEMIPARESIS [None]
